FAERS Safety Report 17602228 (Version 1)
Quarter: 2020Q1

REPORT INFORMATION
  Report Type: Spontaneous
  Country: US (occurrence: US)
  Receive Date: 20200331
  Receipt Date: 20200331
  Transmission Date: 20200409
  Serious: No
  Sender: FDA-Public Use
  Company Number: US-ASTRAZENECA-2020SE36678

PATIENT
  Age: 25884 Day
  Sex: Male

DRUGS (1)
  1. BYETTA [Suspect]
     Active Substance: EXENATIDE
     Indication: TYPE 2 DIABETES MELLITUS
     Route: 058

REACTIONS (3)
  - Tremor [Unknown]
  - Blood glucose increased [Recovering/Resolving]
  - Needle issue [Recovered/Resolved]

NARRATIVE: CASE EVENT DATE: 20200306
